FAERS Safety Report 16182690 (Version 2)
Quarter: 2019Q2

REPORT INFORMATION
  Report Type: Spontaneous
  Country: JP (occurrence: JP)
  Receive Date: 20190411
  Receipt Date: 20190530
  Transmission Date: 20190711
  Serious: Yes (Hospitalization)
  Sender: FDA-Public Use
  Company Number: JP-TAKEDA-2019TJP007668

PATIENT
  Age: 76 Year
  Sex: Male

DRUGS (1)
  1. INISYNC COMBINATION TABLETS [Suspect]
     Active Substance: ALOGLIPTIN BENZOATE\METFORMIN HYDROCHLORIDE
     Indication: DIABETES MELLITUS
     Dosage: 1 DOSAGE FORM
     Route: 048
     Dates: start: 20180701, end: 20190223

REACTIONS (3)
  - Diabetic amyotrophy [Recovered/Resolved]
  - Off label use [Unknown]
  - Diabetic neuropathy [Recovered/Resolved]

NARRATIVE: CASE EVENT DATE: 20180701
